FAERS Safety Report 12335697 (Version 3)
Quarter: 2016Q2

REPORT INFORMATION
  Report Type: Report from Study
  Country: BR (occurrence: BR)
  Receive Date: 20160505
  Receipt Date: 20160627
  Transmission Date: 20160815
  Serious: Yes (Hospitalization, Other)
  Sender: FDA-Public Use
  Company Number: BR-ALEXION PHARMACEUTICALS INC-A201603210

PATIENT
  Age: 21 Year
  Sex: Female

DRUGS (1)
  1. SOLIRIS [Suspect]
     Active Substance: ECULIZUMAB
     Indication: HAEMOLYTIC URAEMIC SYNDROME
     Dosage: 900 MG, QW
     Route: 042
     Dates: start: 20160407

REACTIONS (11)
  - Heart rate increased [Not Recovered/Not Resolved]
  - Tachycardia [Recovering/Resolving]
  - Cardiac failure [Recovering/Resolving]
  - Insomnia [Not Recovered/Not Resolved]
  - Cardiomyopathy [Recovering/Resolving]
  - Oedema peripheral [Not Recovered/Not Resolved]
  - Tachypnoea [Recovering/Resolving]
  - Acute respiratory distress syndrome [Recovering/Resolving]
  - Pyrexia [Recovered/Resolved]
  - Infection [Not Recovered/Not Resolved]
  - Pulmonary oedema [Not Recovered/Not Resolved]

NARRATIVE: CASE EVENT DATE: 20160421
